FAERS Safety Report 5773069-X (Version None)
Quarter: 2008Q2

REPORT INFORMATION
  Report Type: 
  Country: None (occurrence: None)
  Receive Date: 20080611
  Receipt Date: 20080604
  Transmission Date: 20081010
  Serious: Yes (Other)
  Sender: FDA-Public Use
  Company Number: 2008SP005928

PATIENT
  Age: 48 Year
  Sex: Female
  Weight: 52.1637 kg

DRUGS (3)
  1. PEG-INTRON [Suspect]
     Indication: HEPATITIS C
     Dosage: 80 MCG; QW; SC
     Route: 058
     Dates: start: 20071016
  2. REBETOL [Suspect]
     Indication: HEPATITIS C
     Dosage: 400 MG; QD; PO
     Route: 048
     Dates: start: 20071016
  3. PAIN MEDICATION [Concomitant]

REACTIONS (23)
  - ALOPECIA [None]
  - ANAEMIA [None]
  - ANGER [None]
  - CHILLS [None]
  - DECUBITUS ULCER [None]
  - DEHYDRATION [None]
  - DEPRESSION [None]
  - DRUG INEFFECTIVE [None]
  - FAMILY STRESS [None]
  - FEELING ABNORMAL [None]
  - HEADACHE [None]
  - INSOMNIA [None]
  - MIGRAINE [None]
  - MUSCLE TWITCHING [None]
  - NAUSEA [None]
  - ORAL INTAKE REDUCED [None]
  - RASH [None]
  - REFUSAL OF TREATMENT BY PATIENT [None]
  - RETCHING [None]
  - SKIN WRINKLING [None]
  - STRESS [None]
  - VICTIM OF ABUSE [None]
  - WEIGHT DECREASED [None]
